FAERS Safety Report 7088812-X (Version None)
Quarter: 2010Q4

REPORT INFORMATION
  Report Type: 
  Country: None (occurrence: None)
  Receive Date: 20101108
  Receipt Date: 20101026
  Transmission Date: 20110411
  Serious: Yes (Other)
  Sender: FDA-Public Use
  Company Number: PHHY2010FR73122

PATIENT
  Sex: Female

DRUGS (2)
  1. TEGRETOL [Suspect]
     Dosage: UNK
  2. RIVOTRIL [Suspect]
     Dosage: UNK

REACTIONS (5)
  - CONVULSION [None]
  - DRUG DOSE OMISSION [None]
  - DRUG EXPOSURE DURING PREGNANCY [None]
  - PARTIAL SEIZURES [None]
  - VACUUM EXTRACTOR DELIVERY [None]
